FAERS Safety Report 5233790-9 (Version None)
Quarter: 2007Q1

REPORT INFORMATION
  Report Type: 
  Country: None (occurrence: None)
  Receive Date: 20070208
  Receipt Date: 20070201
  Transmission Date: 20070707
  Serious: Yes (Disabling)
  Sender: FDA-Public Use
  Company Number: AU-ROCHE-481171

PATIENT
  Age: 22 Year
  Sex: Male
  Weight: 58 kg

DRUGS (1)
  1. ROACCUTANE [Suspect]
     Indication: DRUG USE FOR UNKNOWN INDICATION
     Route: 065
     Dates: start: 20010615, end: 20020615

REACTIONS (2)
  - FATIGUE [None]
  - IRRITABLE BOWEL SYNDROME [None]
